FAERS Safety Report 16039325 (Version 2)
Quarter: 2019Q3

REPORT INFORMATION
  Report Type: Spontaneous
  Country: US (occurrence: US)
  Receive Date: 20190306
  Receipt Date: 20190918
  Transmission Date: 20191004
  Serious: No
  Sender: FDA-Public Use
  Company Number: US-MYLANLABS-2019M1017491

PATIENT
  Sex: Male
  Weight: 68 kg

DRUGS (1)
  1. FENTANYL TRANSDERMAL SYSTEM [Suspect]
     Active Substance: FENTANYL
     Indication: DYSTONIA
     Dosage: UNK UNK, Q3D
     Route: 062

REACTIONS (1)
  - Therapeutic product effect decreased [Not Recovered/Not Resolved]
